FAERS Safety Report 8445398-2 (Version None)
Quarter: 2012Q2

REPORT INFORMATION
  Report Type: 
  Country: None (occurrence: None)
  Receive Date: 20120618
  Receipt Date: 20111230
  Transmission Date: 20120825
  Serious: No
  Sender: FDA-Public Use
  Company Number: US-TEVA-2012000016

PATIENT
  Age: 46 Year
  Sex: Female

DRUGS (1)
  1. FENTORA [Suspect]
     Indication: BREAKTHROUGH PAIN
     Dosage: 2400 MICROGRAM;
     Route: 002
     Dates: start: 20110601

REACTIONS (3)
  - DRUG PRESCRIBING ERROR [None]
  - SOMNOLENCE [None]
  - DRUG ADMINISTRATION ERROR [None]
